FAERS Safety Report 23446995 (Version 1)
Quarter: 2024Q1

REPORT INFORMATION
  Report Type: Report from Study
  Country: KR (occurrence: KR)
  Receive Date: 20240126
  Receipt Date: 20240126
  Transmission Date: 20240409
  Serious: Yes (Other)
  Sender: FDA-Public Use
  Company Number: KR-GUERBET / KOREA-KR-20240004

PATIENT

DRUGS (4)
  1. LIPIODOL [Suspect]
     Active Substance: ETHIODIZED OIL
     Indication: Lymphangiogram
     Dosage: NBCA AND LIPIODOL DILUTED AT A RATIO OF 1:1 TO 1:5
     Route: 027
  2. LIPIODOL [Suspect]
     Active Substance: ETHIODIZED OIL
     Indication: Therapeutic embolisation
  3. ENBUCRILATE [Suspect]
     Active Substance: ENBUCRILATE
     Indication: Lymphangiogram
     Dosage: NBCA AND LIPIODOL DILUTED AT A RATIO OF 1:1 TO 1:5
     Route: 027
  4. ENBUCRILATE [Suspect]
     Active Substance: ENBUCRILATE
     Indication: Therapeutic embolisation

REACTIONS (2)
  - Chylothorax [Recovered/Resolved]
  - Product use in unapproved indication [Recovered/Resolved]
